FAERS Safety Report 7001039-2 (Version None)
Quarter: 2010Q3

REPORT INFORMATION
  Report Type: 
  Country: None (occurrence: None)
  Receive Date: 20100920
  Receipt Date: 20100412
  Transmission Date: 20110219
  Serious: Yes (Hospitalization)
  Sender: FDA-Public Use
  Company Number: US-ASTRAZENECA-2009UW14526

PATIENT
  Age: 652 Month
  Sex: Male

DRUGS (4)
  1. SEROQUEL [Suspect]
     Dosage: 300 MG TO 400 MG
     Route: 048
     Dates: start: 20050101
  2. SEROQUEL [Suspect]
     Route: 048
     Dates: start: 20071101
  3. SEROQUEL [Suspect]
     Route: 048
     Dates: start: 20080201
  4. SEROQUEL [Suspect]
     Route: 048
     Dates: start: 20080301

REACTIONS (4)
  - DIABETES MELLITUS INADEQUATE CONTROL [None]
  - DIABETIC KETOACIDOSIS [None]
  - TYPE 1 DIABETES MELLITUS [None]
  - TYPE 2 DIABETES MELLITUS [None]
